FAERS Safety Report 13356791 (Version 1)
Quarter: 2017Q1

REPORT INFORMATION
  Report Type: Report from Study
  Country: None (occurrence: CA)
  Receive Date: 20170321
  Receipt Date: 20170321
  Transmission Date: 20170429
  Serious: Yes (Hospitalization)
  Sender: FDA-Public Use
  Company Number: CA-ABBVIE-17P-028-1910213-00

PATIENT
  Age: 67 Year
  Sex: Male

DRUGS (1)
  1. HUMIRA [Suspect]
     Active Substance: ADALIMUMAB
     Indication: CROHN^S DISEASE
     Route: 058
     Dates: start: 20160822, end: 2017

REACTIONS (11)
  - Chromaturia [Not Recovered/Not Resolved]
  - Wound [Not Recovered/Not Resolved]
  - Hypophagia [Not Recovered/Not Resolved]
  - Dry throat [Not Recovered/Not Resolved]
  - Rhinorrhoea [Not Recovered/Not Resolved]
  - Pyrexia [Not Recovered/Not Resolved]
  - Weight decreased [Not Recovered/Not Resolved]
  - Cough [Not Recovered/Not Resolved]
  - Skin discolouration [Not Recovered/Not Resolved]
  - Anal fistula [Unknown]
  - Myalgia [Unknown]

NARRATIVE: CASE EVENT DATE: 2017
